FAERS Safety Report 5904167-5 (Version None)
Quarter: 2008Q4

REPORT INFORMATION
  Report Type: 
  Country: None (occurrence: None)
  Receive Date: 20081001
  Receipt Date: 20080929
  Transmission Date: 20090506
  Serious: Yes (Hospitalization)
  Sender: FDA-Public Use
  Company Number: US-SP-2008-02660

PATIENT
  Age: 68 Year
  Sex: Female

DRUGS (10)
  1. THERACYS [Suspect]
     Indication: BLADDER CANCER
     Route: 043
     Dates: start: 20080528, end: 20080717
  2. THERACYS [Suspect]
     Route: 043
     Dates: start: 20080528, end: 20080717
  3. THERACYS [Suspect]
     Route: 043
     Dates: start: 20080528, end: 20080717
  4. CODEINE SUL TAB [Concomitant]
  5. ASPIRIN [Concomitant]
  6. PREVACID [Concomitant]
  7. VITAMIN B-12 [Concomitant]
  8. SINGULAIR [Concomitant]
  9. VYTORIN [Concomitant]
  10. AMITRIPTYLINE HCL [Concomitant]

REACTIONS (9)
  - ABDOMINAL PAIN UPPER [None]
  - ANAEMIA [None]
  - ARTHRALGIA [None]
  - DIVERTICULUM [None]
  - FLANK PAIN [None]
  - GASTRITIS [None]
  - HAEMATURIA [None]
  - INAPPROPRIATE SCHEDULE OF DRUG ADMINISTRATION [None]
  - PYREXIA [None]
